FAERS Safety Report 9682472 (Version 1)
Quarter: 2013Q4

REPORT INFORMATION
  Report Type: Report from Study
  Country: US (occurrence: US)
  Receive Date: 20131112
  Receipt Date: 20131112
  Transmission Date: 20140711
  Serious: Yes (Hospitalization)
  Sender: FDA-Public Use
  Company Number: US-ROCHE-1295188

PATIENT
  Sex: Male
  Weight: 95.52 kg

DRUGS (2)
  1. AVASTIN [Suspect]
     Indication: ASTROCYTOMA
     Route: 065
  2. DEXAMETHASONE [Concomitant]
     Route: 065

REACTIONS (15)
  - Pneumonia [Unknown]
  - Asthenia [Unknown]
  - Increased tendency to bruise [Unknown]
  - Candida infection [Unknown]
  - Nausea [Unknown]
  - Fall [Unknown]
  - Anxiety [Unknown]
  - Hypertension [Unknown]
  - Osteopenia [Unknown]
  - Visual impairment [Unknown]
  - Headache [Unknown]
  - Blood glucose increased [Unknown]
  - Skin striae [Unknown]
  - Skin striae [Unknown]
  - Diarrhoea [Unknown]
